FAERS Safety Report 5867439-9 (Version None)
Quarter: 2008Q3

REPORT INFORMATION
  Report Type: 
  Country: None (occurrence: None)
  Receive Date: 20080902
  Receipt Date: 20080902
  Transmission Date: 20090109
  Serious: Yes (Hospitalization)
  Sender: FDA-Public Use
  Company Number: PHEH1996US10625

PATIENT
  Sex: Female
  Weight: 63.5 kg

DRUGS (8)
  1. SANDIMMUNE [Suspect]
     Route: 048
     Dates: start: 19950310
  2. PREDNISONE TAB [Concomitant]
     Dosage: UNSPECIFIED
     Route: 065
  3. IMURAN [Concomitant]
     Dosage: UNSPECIFIED
     Route: 065
  4. ACYCLOVIR [Concomitant]
     Dosage: UNSPECIFIED
     Route: 065
  5. ASPIRIN [Concomitant]
     Dosage: UNSPECIFIED
     Route: 065
  6. INSULIN [Concomitant]
     Dosage: UNSPECIFIED
     Route: 065
  7. MYCELEX [Concomitant]
     Dosage: UNSPECIFIED
     Route: 065
  8. PEPCID [Concomitant]
     Dosage: UNSPECIFIED
     Route: 065

REACTIONS (3)
  - DIARRHOEA [None]
  - GASTROENTERITIS [None]
  - PYREXIA [None]
